FAERS Safety Report 9347507 (Version 1)
Quarter: 2013Q2

REPORT INFORMATION
  Report Type: Spontaneous
  Country: US (occurrence: US)
  Receive Date: 20130614
  Receipt Date: 20130614
  Transmission Date: 20140414
  Serious: No
  Sender: FDA-Public Use
  Company Number: US-ASTRAZENECA-2013SE40896

PATIENT
  Age: 21 Year
  Sex: Male
  Weight: 99.8 kg

DRUGS (4)
  1. SEROQUEL XR [Suspect]
     Indication: PARANOIA
     Route: 048
     Dates: start: 201305
  2. SEROQUEL XR [Suspect]
     Indication: BIPOLAR DISORDER
     Route: 048
     Dates: start: 201305
  3. SEROQUEL XR [Suspect]
     Indication: SCHIZOPHRENIA
     Route: 048
     Dates: start: 201305
  4. VISITIRIL [Concomitant]
     Indication: ANXIOLYTIC THERAPY
     Dosage: UNKNOWN

REACTIONS (4)
  - Dysarthria [Unknown]
  - Delirium [Unknown]
  - Agitation [Unknown]
  - Belligerence [Unknown]
